FAERS Safety Report 5886954-5 (Version None)
Quarter: 2008Q3

REPORT INFORMATION
  Report Type: 
  Country: None (occurrence: None)
  Receive Date: 20080917
  Receipt Date: 20080911
  Transmission Date: 20090109
  Serious: Yes (Hospitalization)
  Sender: FDA-Public Use
  Company Number: IL-ABBOTT-08P-082-0474260-00

PATIENT
  Sex: Female
  Weight: 58 kg

DRUGS (1)
  1. KALETRA [Suspect]
     Indication: HIV INFECTION
     Dates: start: 20080121

REACTIONS (3)
  - ARTHRALGIA [None]
  - SYNOVITIS [None]
  - UVEITIS [None]
